FAERS Safety Report 10464936 (Version 1)
Quarter: 2014Q3

REPORT INFORMATION
  Report Type: Spontaneous
  Country: US (occurrence: US)
  Receive Date: 20140919
  Receipt Date: 20140919
  Transmission Date: 20150326
  Serious: No
  Sender: FDA-Public Use
  Company Number: US-PFIZER INC-2014258123

PATIENT
  Sex: Male

DRUGS (1)
  1. LYRICA [Suspect]
     Active Substance: PREGABALIN
     Dosage: UNK

REACTIONS (6)
  - Swelling [Unknown]
  - Urticaria [Unknown]
  - Scratch [Unknown]
  - Swelling face [Unknown]
  - Weight increased [Unknown]
  - Facial asymmetry [Unknown]
